FAERS Safety Report 5897911-7 (Version None)
Quarter: 2008Q3

REPORT INFORMATION
  Report Type: 
  Country: None (occurrence: None)
  Receive Date: 20080925
  Receipt Date: 20080917
  Transmission Date: 20090109
  Serious: Yes (Other)
  Sender: FDA-Public Use
  Company Number: US-ABBOTT-08P-163-0476728-00

PATIENT
  Sex: Female
  Weight: 77.18 kg

DRUGS (7)
  1. NIASPAN [Suspect]
     Indication: HIGH DENSITY LIPOPROTEIN DECREASED
     Route: 048
     Dates: start: 20080821, end: 20080911
  2. NIASPAN [Suspect]
     Route: 048
     Dates: start: 20080911, end: 20080915
  3. METOPROLOL SUCCINATE [Concomitant]
     Indication: HYPERTENSION
     Route: 048
  4. ATORVASTATIN CALCIUM [Concomitant]
     Indication: BLOOD CHOLESTEROL INCREASED
     Route: 048
  5. GLUCOSAMINE [Concomitant]
     Indication: MEDICAL DIET
     Route: 048
  6. FISH OIL [Concomitant]
     Indication: MEDICAL DIET
     Route: 048
  7. BIRTH CONTROL [Concomitant]
     Indication: CONTRACEPTION
     Route: 048

REACTIONS (4)
  - EYE SWELLING [None]
  - FLUSHING [None]
  - LIP SWELLING [None]
  - PHARYNGEAL OEDEMA [None]
